FAERS Safety Report 21138979 (Version 9)
Quarter: 2023Q1

REPORT INFORMATION
  Report Type: Report from Study
  Country: US (occurrence: US)
  Receive Date: 20220727
  Receipt Date: 20230127
  Transmission Date: 20230417
  Serious: Yes (Hospitalization, Other)
  Sender: FDA-Public Use
  Company Number: US-NOVARTISTESTPH-NVSC2022US169787

PATIENT
  Age: 72 Year
  Sex: Male

DRUGS (16)
  1. ENTRESTO [Suspect]
     Active Substance: SACUBITRIL\VALSARTAN
     Indication: Cardiac failure
     Dosage: 1 DOSAGE FORM, BID
     Route: 048
     Dates: start: 20220726, end: 20220910
  2. ENTRESTO [Suspect]
     Active Substance: SACUBITRIL\VALSARTAN
     Dosage: UNK, BID
     Route: 048
  3. ENTRESTO [Suspect]
     Active Substance: SACUBITRIL\VALSARTAN
     Dosage: UNK
     Route: 065
     Dates: start: 20221102
  4. LASIX [Concomitant]
     Active Substance: FUROSEMIDE
     Indication: Product used for unknown indication
     Dosage: 2 DOSAGE FORM, QD, (BY MOUTH)
     Route: 065
     Dates: start: 20220910, end: 20220915
  5. LASIX [Concomitant]
     Active Substance: FUROSEMIDE
     Dosage: UNK UNK, BID
     Route: 065
  6. SPIRONOLACTONE [Concomitant]
     Active Substance: SPIRONOLACTONE
     Indication: Product used for unknown indication
     Dosage: 0.5 DOSAGE FORM, QD
     Route: 065
  7. ALLOPURINOL [Concomitant]
     Active Substance: ALLOPURINOL
     Indication: Product used for unknown indication
     Dosage: 0.5 DOSAGE FORM, QD (BY MOUTH)
     Route: 048
     Dates: start: 20220131, end: 20220910
  8. ALLOPURINOL [Concomitant]
     Active Substance: ALLOPURINOL
     Dosage: 1 DOSAGE FORM, EVERY AFTERNOON
     Route: 048
  9. APIXABAN [Concomitant]
     Active Substance: APIXABAN
     Indication: Embolism venous
     Dosage: 1 DOSAGE FORM, BID, (BY MOUTH)
     Route: 048
     Dates: start: 20220815
  10. CARVEDILOL [Concomitant]
     Active Substance: CARVEDILOL
     Indication: Product used for unknown indication
     Dosage: 1 DOSAGE FORM, BID, (BY MOUTH), ADMINISTER WITH FOOD
     Route: 048
     Dates: start: 20220524
  11. EPINEPHRINE [Concomitant]
     Active Substance: EPINEPHRINE
     Indication: Product used for unknown indication
     Dosage: 0.3 ML, ONE DOSE EVERY 10-20 MINUTES
     Route: 030
     Dates: start: 20201029
  12. FEXOFENADINE [Concomitant]
     Active Substance: FEXOFENADINE HYDROCHLORIDE
     Indication: Product used for unknown indication
     Dosage: 180 MG, EVERY AFTERNOON
     Route: 048
  13. LOVASTATIN [Concomitant]
     Active Substance: LOVASTATIN
     Indication: Product used for unknown indication
     Dosage: 1 DOSAGE FORM, QD, EVERY AFTERNOON
     Route: 065
     Dates: start: 20220906
  14. PRILOSEC [Concomitant]
     Active Substance: OMEPRAZOLE MAGNESIUM
     Indication: Product used for unknown indication
     Dosage: 40 MG, COUPLES OF TIMES A WEEK
     Route: 048
  15. VENTOLIN HFA [Concomitant]
     Active Substance: ALBUTEROL SULFATE
     Indication: Product used for unknown indication
     Dosage: UNK, INHALE 1 PUFF BY MOUTH EVERY 6 HOURS AS NEEDED, (ACTUATION HFAA)
     Route: 065
     Dates: start: 20220327
  16. DOXYCYCLINE HYCLATE [Concomitant]
     Active Substance: DOXYCYCLINE HYCLATE
     Indication: Product used for unknown indication
     Dosage: 1 DOSAGE FORM, EVERY 12 HOURS FOR 7 DAYS
     Route: 048
     Dates: start: 20220815, end: 20220822

REACTIONS (23)
  - Nausea [Unknown]
  - Atrial flutter [Recovering/Resolving]
  - Hypovolaemia [Unknown]
  - Dizziness [Recovered/Resolved]
  - Acute kidney injury [Unknown]
  - Cardiac failure [Unknown]
  - Heart rate abnormal [Unknown]
  - Throat clearing [Not Recovered/Not Resolved]
  - Cardiac disorder [Unknown]
  - Haemoglobin decreased [Unknown]
  - Asthma [Unknown]
  - Haematocrit decreased [Unknown]
  - Mean cell volume increased [Unknown]
  - Gout [Unknown]
  - Essential hypertension [Unknown]
  - Monocyte count increased [Unknown]
  - Platelet count decreased [Unknown]
  - Decreased activity [Unknown]
  - Fall [Unknown]
  - Fatigue [Recovering/Resolving]
  - Blood urea increased [Unknown]
  - Blood creatinine increased [Unknown]
  - Hypotension [Recovering/Resolving]

NARRATIVE: CASE EVENT DATE: 20220909
